FAERS Safety Report 6846942-9 (Version None)
Quarter: 2010Q3

REPORT INFORMATION
  Report Type: 
  Country: None (occurrence: None)
  Receive Date: 20100713
  Receipt Date: 20100629
  Transmission Date: 20110219
  Serious: Yes (Death, Congenital Anomaly)
  Sender: FDA-Public Use
  Company Number: B0664546B

PATIENT
  Sex: 0

DRUGS (4)
  1. PYRIMETHAMINE TAB [Suspect]
     Indication: INFECTION PROTOZOAL
     Dosage: / TRANSPLACENTARY
     Route: 064
  2. SULPHADIAZINE (FORMULATION UNKNOWN) (SULFAIDIAZINE) [Suspect]
     Indication: INFECTION PROTOZOAL
     Dosage: 3 GRAM (S) / PER DAY/ TRANSPLACENTARY
     Route: 064
  3. CALCIUM FOLINATE (FORMULATION UNKNOWN) (CALCIUM FOLINATE) [Suspect]
     Dosage: 15 MG / PER DAY / TRANSPLACENTARY
     Route: 064
  4. SPIRAMYCIN (FORMULATION UNKNOWN) (SPIRAMYCIN) [Suspect]
     Dosage: 3 GRAMS (S) PER DAY/ TRANSPLACENTARY
     Route: 064

REACTIONS (2)
  - CONGENITAL TOXOPLASMOSIS [None]
  - MATERNAL DRUGS AFFECTING FOETUS [None]
